FAERS Safety Report 20598207 (Version 1)
Quarter: 2022Q1

REPORT INFORMATION
  Report Type: Spontaneous
  Country: CH (occurrence: None)
  Receive Date: 20220315
  Receipt Date: 20220315
  Transmission Date: 20220423
  Serious: Yes (Other)
  Sender: FDA-Public Use
  Company Number: DE-ROCHE-3002677

PATIENT
  Sex: Female

DRUGS (3)
  1. VALIUM [Suspect]
     Active Substance: DIAZEPAM
     Indication: Bipolar disorder
     Dosage: HALF A TABLET 3X DAILY
     Route: 048
  2. SEROQUEL [Concomitant]
     Active Substance: QUETIAPINE FUMARATE
     Indication: Bipolar disorder
  3. MIRTAZAPINE [Concomitant]
     Active Substance: MIRTAZAPINE
     Indication: Bipolar disorder

REACTIONS (4)
  - Bipolar disorder [Unknown]
  - Withdrawal syndrome [Unknown]
  - Off label use [Unknown]
  - Neoplasm [Unknown]
